FAERS Safety Report 5733721-9 (Version None)
Quarter: 2008Q2

REPORT INFORMATION
  Report Type: 
  Country: None (occurrence: None)
  Receive Date: 20080509
  Receipt Date: 20080429
  Transmission Date: 20081010
  Serious: Yes (Other)
  Sender: FDA-Public Use
  Company Number: NL-PFIZER INC-2008037740

PATIENT
  Age: 48 Year
  Sex: Male
  Weight: 94 kg

DRUGS (3)
  1. LYRICA [Suspect]
     Indication: NEURALGIA
     Route: 048
  2. INSULIN [Concomitant]
  3. LIPITOR [Concomitant]

REACTIONS (3)
  - DYSURIA [None]
  - POOR QUALITY SLEEP [None]
  - VISION BLURRED [None]
